FAERS Safety Report 9434821 (Version 1)
Quarter: 2013Q3

REPORT INFORMATION
  Report Type: Spontaneous
  Country: FR (occurrence: FR)
  Receive Date: 20130801
  Receipt Date: 20130801
  Transmission Date: 20140515
  Serious: Yes (Hospitalization)
  Sender: FDA-Public Use
  Company Number: FR-ASTRAZENECA-2013SE55990

PATIENT
  Age: 14788 Day
  Sex: Female

DRUGS (6)
  1. XYLOCARD [Suspect]
     Indication: GENERAL ANAESTHESIA
     Route: 042
     Dates: start: 20130301, end: 20130301
  2. ACUPAN [Concomitant]
     Indication: GENERAL ANAESTHESIA
     Route: 042
     Dates: start: 20130301, end: 20130301
  3. DEXAMETHASONE [Concomitant]
     Indication: GENERAL ANAESTHESIA
     Route: 042
     Dates: start: 20130301, end: 20130301
  4. DIPRIVAN [Concomitant]
     Indication: GENERAL ANAESTHESIA
     Dates: start: 20130301, end: 20130301
  5. DROLEPTAN [Concomitant]
     Indication: GENERAL ANAESTHESIA
     Dates: start: 20130301, end: 20130301
  6. ULTIVA [Concomitant]
     Indication: GENERAL ANAESTHESIA
     Dates: start: 20130301, end: 20130301

REACTIONS (4)
  - Tongue oedema [Recovered/Resolved]
  - Erythema [Recovered/Resolved]
  - Dysphagia [Unknown]
  - Dyspnoea [Recovered/Resolved]
